FAERS Safety Report 4315610-X (Version None)
Quarter: 2004Q1

REPORT INFORMATION
  Report Type: 
  Country: None (occurrence: None)
  Receive Date: 20040310
  Receipt Date: 20040227
  Transmission Date: 20041129
  Serious: No
  Sender: FDA-Public Use
  Company Number: 2004AP01246

PATIENT
  Age: 35 Year
  Sex: Female

DRUGS (3)
  1. MEROPENEM [Suspect]
     Indication: PNEUMONIA PNEUMOCOCCAL
  2. MEROPENEM [Suspect]
     Indication: PNEUMONIA PNEUMOCOCCAL
  3. CEFEPIME [Concomitant]

REACTIONS (6)
  - ACUTE RESPIRATORY FAILURE [None]
  - HYPOKALAEMIA [None]
  - HYPOMAGNESAEMIA [None]
  - HYPOTENSION [None]
  - MUSCULAR WEAKNESS [None]
  - PYREXIA [None]
